FAERS Safety Report 6551382-6 (Version None)
Quarter: 2010Q1

REPORT INFORMATION
  Report Type: 
  Country: None (occurrence: None)
  Receive Date: 20100126
  Receipt Date: 20100121
  Transmission Date: 20100710
  Serious: Yes (Hospitalization)
  Sender: FDA-Public Use
  Company Number: FR-ROCHE-679145

PATIENT
  Sex: Male
  Weight: 92 kg

DRUGS (15)
  1. ZYVOXID (NON-ROCHE/NON-COMPARATOR) [Suspect]
     Indication: DRUG USE FOR UNKNOWN INDICATION
     Dosage: FORM RPTD AS FILM COATED TABLET
     Route: 048
     Dates: start: 20090910, end: 20090923
  2. ROCEPHIN [Concomitant]
     Route: 058
     Dates: start: 20090812, end: 20090923
  3. TARGOCID [Concomitant]
     Route: 058
     Dates: start: 20090820, end: 20090910
  4. ALDACTONE [Concomitant]
     Route: 048
  5. ALDACTONE [Concomitant]
     Route: 048
     Dates: start: 20091008
  6. PREVISCAN [Concomitant]
     Route: 048
     Dates: end: 20090928
  7. PREVISCAN [Concomitant]
     Route: 048
  8. LASILIX [Concomitant]
     Route: 048
  9. LASILIX [Concomitant]
     Route: 058
     Dates: start: 20090929
  10. HEPARIN SODIUM [Concomitant]
     Indication: HYPERCOAGULATION
     Route: 042
     Dates: start: 20090925, end: 20091007
  11. KARDEGIC [Concomitant]
     Route: 048
  12. KARDEGIC [Concomitant]
     Route: 048
     Dates: start: 20090929
  13. CORDARONE [Concomitant]
     Indication: VENTRICULAR TACHYCARDIA
     Dosage: FIVE OUT OF SEVEN DAYS
     Route: 048
  14. KALEORID LP [Concomitant]
     Dosage: PROLONGED RELEASE TABLET
  15. KALEORID LP [Concomitant]
     Dates: start: 20091001

REACTIONS (1)
  - PANCYTOPENIA [None]
